FAERS Safety Report 9231083 (Version 2)
Quarter: 2013Q2

REPORT INFORMATION
  Report Type: Spontaneous
  Country: US (occurrence: None)
  Receive Date: 20121031
  Receipt Date: 20130107
  Transmission Date: 20140414
  Serious: No
  Sender: FDA-Public Use
  Company Number: PHEH2012US016185

PATIENT
  Age: 40 Year
  Sex: Male

DRUGS (6)
  1. GILENYA (FTY)CAPSULE, 0.5MG [Suspect]
     Indication: MULTIPLE SCLEROSIS
     Route: 048
     Dates: start: 201102
  2. BACLOFEN (BACLOFEN) [Concomitant]
  3. NEUROTRONIN (GABAPENTIN) [Concomitant]
  4. CELEXA (CITALOPRAM HYDROBROMIDE) [Concomitant]
  5. ZOCOR 9SIMVASTATIN) [Concomitant]
  6. DAZOTINE (DAZOTINE) [Concomitant]

REACTIONS (5)
  - Vitreous floaters [None]
  - Visual field defect [None]
  - Photopsia [None]
  - Visual impairment [None]
  - Vision blurred [None]
